FAERS Safety Report 6151209-0 (Version None)
Quarter: 2009Q2

REPORT INFORMATION
  Report Type: 
  Country: None (occurrence: None)
  Receive Date: 20090410
  Receipt Date: 20090403
  Transmission Date: 20091009
  Serious: Yes (Other)
  Sender: FDA-Public Use
  Company Number: US-ASTRAZENECA-2009UW08475

PATIENT
  Sex: Female

DRUGS (1)
  1. SEROQUEL [Suspect]
     Route: 048

REACTIONS (8)
  - HORMONE LEVEL ABNORMAL [None]
  - HYPERHIDROSIS [None]
  - ILL-DEFINED DISORDER [None]
  - LACERATION [None]
  - NORMAL PRESSURE HYDROCEPHALUS [None]
  - PRURITUS [None]
  - PULSE ABNORMAL [None]
  - SENSORY LOSS [None]
